FAERS Safety Report 17048183 (Version 1)
Quarter: 2019Q4

REPORT INFORMATION
  Report Type: Report from Study
  Country: IT (occurrence: IT)
  Receive Date: 20191119
  Receipt Date: 20191119
  Transmission Date: 20200122
  Serious: Yes (Other)
  Sender: FDA-Public Use
  Company Number: IT-ROCHE-2474733

PATIENT

DRUGS (2)
  1. ALTEPLASE. [Suspect]
     Active Substance: ALTEPLASE
     Dosage: WITH A MAXIMUM UPPER DOSE LIMIT OF 90 MG?90% OF THE DOSE WAS GIVEN BY CONTINUOUS I.V. INFUSION OVER
     Route: 042
  2. ALTEPLASE. [Suspect]
     Active Substance: ALTEPLASE
     Indication: CEREBROVASCULAR ACCIDENT
     Dosage: WITH A MAXIMUM UPPER DOSE LIMIT OF 90 MG?TEN PER CENT OF THE TOTAL DOSE WAS ADMINISTERED AS AN I.V.
     Route: 040

REACTIONS (1)
  - Pyrexia [Unknown]
